FAERS Safety Report 8890536 (Version 1)
Quarter: 2012Q4

REPORT INFORMATION
  Report Type: 
  Country: EC (occurrence: EC)
  Receive Date: 20121107
  Receipt Date: 20121107
  Transmission Date: 20130627
  Serious: Yes (Disabling, Other)
  Sender: FDA-Public Use
  Company Number: PHHY2012EC101965

PATIENT
  Age: 74 Year
  Sex: Female

DRUGS (2)
  1. EXFORGE HCT [Suspect]
     Indication: HYPERTENSION
     Dosage: 1 DF (160/5/25mg) daily
     Dates: start: 20111121
  2. AMARYL [Concomitant]
     Dosage: UNK UKN, UNK

REACTIONS (3)
  - Road traffic accident [Recovering/Resolving]
  - Upper limb fracture [Recovering/Resolving]
  - Loose body in joint [Recovering/Resolving]
